FAERS Safety Report 25884438 (Version 2)
Quarter: 2025Q4

REPORT INFORMATION
  Report Type: Report from Study
  Country: RU (occurrence: RU)
  Receive Date: 20251006
  Receipt Date: 20251024
  Transmission Date: 20260119
  Serious: Yes (Other)
  Sender: TAKEDA
  Company Number: RU-TAKEDA-2025TUS087378

PATIENT
  Sex: Male

DRUGS (1)
  1. FRUQUINTINIB [Suspect]
     Active Substance: FRUQUINTINIB
     Indication: Colorectal cancer metastatic
     Dosage: 5 MILLIGRAM, QD
     Dates: start: 20250801, end: 20250920

REACTIONS (3)
  - Colorectal cancer metastatic [Unknown]
  - Hepatic lesion [Unknown]
  - Fatigue [Unknown]

NARRATIVE: CASE EVENT DATE: 20250814
